FAERS Safety Report 12221640 (Version 5)
Quarter: 2017Q1

REPORT INFORMATION
  Report Type: Spontaneous
  Country: US (occurrence: US)
  Receive Date: 20160330
  Receipt Date: 20170103
  Transmission Date: 20170428
  Serious: Yes (Hospitalization, Other)
  Sender: FDA-Public Use
  Company Number: US-PFIZER INC-2015117866

PATIENT
  Age: 62 Year
  Sex: Male
  Weight: 63 kg

DRUGS (2)
  1. VFEND [Suspect]
     Active Substance: VORICONAZOLE
     Indication: VIRAL INFECTION
  2. VFEND [Suspect]
     Active Substance: VORICONAZOLE
     Indication: PNEUMONIA
     Dosage: 200 MG, 2X/DAY (12 HOURS APART)
     Route: 048
     Dates: start: 2015

REACTIONS (11)
  - Weight decreased [Unknown]
  - Malaise [Unknown]
  - Pneumonia [Unknown]
  - Weight fluctuation [Unknown]
  - Lower respiratory tract infection viral [Recovering/Resolving]
  - Infection [Unknown]
  - Lung infection [Unknown]
  - Hip fracture [Unknown]
  - Dyspnoea [Not Recovered/Not Resolved]
  - Rib fracture [Unknown]
  - Asthenia [Unknown]

NARRATIVE: CASE EVENT DATE: 2016
